FAERS Safety Report 8540975-2 (Version None)
Quarter: 2012Q3

REPORT INFORMATION
  Report Type: 
  Country: None (occurrence: None)
  Receive Date: 20120726
  Receipt Date: 20110808
  Transmission Date: 20120928
  Serious: No
  Sender: FDA-Public Use
  Company Number: US-ASTRAZENECA-2011SE48168

PATIENT

DRUGS (8)
  1. TOPAMAX [Concomitant]
  2. SEROQUEL XR [Suspect]
     Route: 048
  3. GABAPENTIN [Concomitant]
  4. TRAMADOL HYDROCHLORIDE [Concomitant]
  5. LISINOPRIL AND HYDROCHLOROTHIAZIDE [Concomitant]
  6. CITALOPRAM HYDROBROMIDE [Concomitant]
  7. CLONAZEPAM [Concomitant]
  8. ZOFRAN [Concomitant]

REACTIONS (4)
  - FEELING ABNORMAL [None]
  - DEPRESSION [None]
  - ANXIETY [None]
  - DRUG DOSE OMISSION [None]
